FAERS Safety Report 16681835 (Version 2)
Quarter: 2019Q4

REPORT INFORMATION
  Report Type: Spontaneous
  Country: AU (occurrence: AU)
  Receive Date: 20190808
  Receipt Date: 20191114
  Transmission Date: 20200122
  Serious: Yes (Disabling, Other)
  Sender: FDA-Public Use
  Company Number: AU-SA-2019SA212135

PATIENT
  Age: 35 Year
  Sex: Male
  Weight: 66 kg

DRUGS (5)
  1. ALPROLIX [Suspect]
     Active Substance: EFTRENONACOG ALFA
     Dosage: STRENGTH: 4000, QW
     Route: 042
     Dates: start: 20190708, end: 20191002
  2. BENEFIX [Concomitant]
     Active Substance: COAGULATION FACTOR IX RECOMBINANT HUMAN\ISOPROPYL ALCOHOL
     Indication: PROPHYLAXIS
     Dosage: UNK UNK, BIW
     Route: 065
     Dates: start: 2019
  3. ALPROLIX [Suspect]
     Active Substance: EFTRENONACOG ALFA
     Dosage: 2 EXTRA DOSES AT 3000 U ALTERNATE DAY FOLLOWED BY 3 FURTHER DOSES AT 5000 U ALTERNATE DAILY
     Route: 042
     Dates: start: 20190530
  4. ALPROLIX [Suspect]
     Active Substance: EFTRENONACOG ALFA
     Indication: FACTOR IX DEFICIENCY
     Dosage: STRENGTH: 4000, QW
     Route: 042
     Dates: start: 20180530
  5. BENEFIX [Concomitant]
     Active Substance: COAGULATION FACTOR IX RECOMBINANT HUMAN\ISOPROPYL ALCOHOL
     Indication: FACTOR IX DEFICIENCY
     Dosage: 4000 IU, PRN
     Route: 042
     Dates: start: 20190606, end: 20191008

REACTIONS (6)
  - Haemarthrosis [Not Recovered/Not Resolved]
  - Pain [Recovered/Resolved]
  - Acute sinusitis [Unknown]
  - Osteonecrosis [Unknown]
  - Stress fracture [Unknown]
  - Arthritis [Unknown]

NARRATIVE: CASE EVENT DATE: 20190530
